FAERS Safety Report 15864019 (Version 1)
Quarter: 2019Q1

REPORT INFORMATION
  Report Type: Spontaneous
  Country: DE (occurrence: DE)
  Receive Date: 20190124
  Receipt Date: 20190124
  Transmission Date: 20190417
  Serious: Yes (Other)
  Sender: FDA-Public Use
  Company Number: DE-PFIZER INC-2019026425

PATIENT
  Age: 68 Year
  Sex: Male
  Weight: 90 kg

DRUGS (1)
  1. OXALIPLATIN. [Suspect]
     Active Substance: OXALIPLATIN
     Indication: COLON CANCER
     Dosage: 178 MG, INFUSION OVER 3 HOURS
     Route: 042
     Dates: start: 20181126

REACTIONS (3)
  - Chills [Recovered/Resolved]
  - Body temperature increased [Recovered/Resolved]
  - Blood pressure increased [Recovered/Resolved]

NARRATIVE: CASE EVENT DATE: 20181126
